FAERS Safety Report 5332995-6 (Version None)
Quarter: 2007Q1

REPORT INFORMATION
  Report Type: 
  Country: None (occurrence: None)
  Receive Date: 20070306
  Receipt Date: 20060707
  Transmission Date: 20070707
  Serious: Yes (Other)
  Sender: FDA-Public Use
  Company Number: A03200604384

PATIENT
  Age: 78 Year
  Sex: Female
  Weight: 90.7 kg

DRUGS (6)
  1. PLAVIX [Suspect]
     Indication: TRANSIENT ISCHAEMIC ATTACK
     Dosage: 75 MG QD ORAL
     Route: 048
     Dates: start: 20060701
  2. LEVOTHYROXINE SODIUM [Concomitant]
  3. HYDROCHLOROTHIAZIDE [Concomitant]
  4. GLYBURIDE [Concomitant]
  5. IRBESARTAN [Concomitant]
  6. LANSOPRAZOLE [Concomitant]

REACTIONS (3)
  - DIZZINESS [None]
  - HAEMATOCHEZIA [None]
  - TRANSIENT ISCHAEMIC ATTACK [None]
